FAERS Safety Report 11520810 (Version 1)
Quarter: 2015Q3

REPORT INFORMATION
  Report Type: Spontaneous
  Country: US (occurrence: None)
  Receive Date: 20150917
  Receipt Date: 20150917
  Transmission Date: 20151125
  Serious: Yes (Other)
  Sender: FDA-Public Use
  Company Number: None

PATIENT

DRUGS (1)
  1. BUPIVACAINE SPINAL 0.75% 2 ML HOSPIRA [Suspect]
     Active Substance: BUPIVACAINE
     Route: 008
     Dates: start: 20150915, end: 20150915

REACTIONS (2)
  - Product quality issue [None]
  - Anaesthetic complication [None]

NARRATIVE: CASE EVENT DATE: 20150915
